FAERS Safety Report 21003309 (Version 1)
Quarter: 2022Q2

REPORT INFORMATION
  Report Type: Spontaneous
  Country: US (occurrence: None)
  Receive Date: 20220623
  Receipt Date: 20220623
  Transmission Date: 20220720
  Serious: Yes (Disabling)
  Sender: FDA-Public Use
  Company Number: None

PATIENT
  Age: 57 Year
  Sex: Female
  Weight: 69.75 kg

DRUGS (14)
  1. TOPAMAX [Suspect]
     Active Substance: TOPIRAMATE
     Indication: Migraine prophylaxis
     Dosage: OTHER QUANTITY : 1 TABLET(S);?FREQUENCY : DAILY;?
     Route: 048
     Dates: start: 20120601, end: 20151001
  2. QULIPTA [Concomitant]
     Active Substance: ATOGEPANT
  3. UBRELVY [Concomitant]
     Active Substance: UBROGEPANT
  4. LOSARTAN [Concomitant]
     Active Substance: LOSARTAN
  5. XANAX [Concomitant]
     Active Substance: ALPRAZOLAM
  6. PROTONIX [Concomitant]
     Active Substance: PANTOPRAZOLE SODIUM
  7. ZANAFLEX [Concomitant]
     Active Substance: TIZANIDINE HYDROCHLORIDE
  8. amitriptilyne [Concomitant]
  9. CALCIUM [Concomitant]
     Active Substance: CALCIUM
  10. BABY ASPIRIN [Concomitant]
  11. MAGNESIUM [Concomitant]
     Active Substance: MAGNESIUM
  12. COENZYME Q10 [Concomitant]
     Active Substance: DIETARY SUPPLEMENT\UBIDECARENONE
  13. VITAMIN B2 [Concomitant]
     Active Substance: RIBOFLAVIN
  14. VITAMIN D3 [Concomitant]
     Active Substance: CHOLECALCIFEROL

REACTIONS (4)
  - Cough [None]
  - Dyspnoea [None]
  - Asthma [None]
  - Adverse drug reaction [None]

NARRATIVE: CASE EVENT DATE: 20120601
